FAERS Safety Report 7679505-6 (Version None)
Quarter: 2011Q3

REPORT INFORMATION
  Report Type: 
  Country: None (occurrence: None)
  Receive Date: 20110812
  Receipt Date: 20110812
  Transmission Date: 20111222
  Serious: Yes (Other)
  Sender: FDA-Public Use
  Company Number: None

PATIENT
  Sex: Male
  Weight: 96 kg

DRUGS (1)
  1. SIPULEUCEL-T [Suspect]
     Dosage: 250ML
     Route: 042

REACTIONS (6)
  - BACK PAIN [None]
  - INFUSION RELATED REACTION [None]
  - DRUG EFFECT INCREASED [None]
  - INCORRECT DOSE ADMINISTERED [None]
  - CHILLS [None]
  - TOXICITY TO VARIOUS AGENTS [None]
